FAERS Safety Report 15795576 (Version 4)
Quarter: 2019Q2

REPORT INFORMATION
  Report Type: Report from Study
  Country: US (occurrence: US)
  Receive Date: 20190107
  Receipt Date: 20190604
  Transmission Date: 20190711
  Serious: Yes (Death, Hospitalization)
  Sender: FDA-Public Use
  Company Number: US-ACTELION-A-US2018-184323

PATIENT
  Age: 2 Year
  Sex: Male
  Weight: 9.07 kg

DRUGS (1)
  1. TRACLEER [Suspect]
     Active Substance: BOSENTAN
     Indication: PULMONARY ARTERIAL HYPERTENSION
     Dosage: 62.5 MG, BID
     Route: 048
     Dates: start: 20181220

REACTIONS (3)
  - Death [Fatal]
  - Treatment noncompliance [Unknown]
  - Hospitalisation [Unknown]

NARRATIVE: CASE EVENT DATE: 201903
